FAERS Safety Report 19002515 (Version 2)
Quarter: 2022Q1

REPORT INFORMATION
  Report Type: Spontaneous
  Country: US (occurrence: US)
  Receive Date: 20210312
  Receipt Date: 20220209
  Transmission Date: 20220423
  Serious: Yes (Life-Threatening, Hospitalization, Disabling, Other)
  Sender: FDA-Public Use
  Company Number: US-GLAXOSMITHKLINE-US2021AMR056421

PATIENT
  Age: 20 Year
  Sex: Male
  Weight: 51 kg

DRUGS (2)
  1. WELLBUTRIN [Suspect]
     Active Substance: BUPROPION HYDROCHLORIDE
     Indication: Depression
     Dosage: UNK
     Route: 048
  2. PAROXETINE [Concomitant]
     Active Substance: PAROXETINE
     Indication: Depression
     Dosage: UNK

REACTIONS (7)
  - Reversible cerebral vasoconstriction syndrome [Recovered/Resolved]
  - Seizure like phenomena [Unknown]
  - Cerebral infarction [Recovered/Resolved]
  - Basilar artery occlusion [Recovered/Resolved]
  - Dysmetria [Recovered/Resolved]
  - Muscular weakness [Recovered/Resolved]
  - Gait inability [Recovered/Resolved]
